FAERS Safety Report 9123227 (Version 1)
Quarter: 2013Q1

REPORT INFORMATION
  Report Type: Spontaneous
  Country: US (occurrence: None)
  Receive Date: 20130226
  Receipt Date: 20130226
  Transmission Date: 20140127
  Serious: Yes (Other)
  Sender: FDA-Public Use
  Company Number: None

PATIENT
  Sex: Female
  Weight: 61.24 kg

DRUGS (1)
  1. ESCITALOPRAM 10 MG [Suspect]
     Indication: DEPRESSION
     Dosage: I DOSE, ONCE/DAY, PO
     Route: 048
     Dates: start: 20121215, end: 20130123

REACTIONS (2)
  - Supraventricular extrasystoles [None]
  - Product substitution issue [None]
